FAERS Safety Report 9177825 (Version 4)
Quarter: 2013Q2

REPORT INFORMATION
  Report Type: Spontaneous
  Country: US (occurrence: None)
  Receive Date: 20130319
  Receipt Date: 20130403
  Transmission Date: 20140414
  Serious: Yes (Other)
  Sender: FDA-Public Use
  Company Number: ADR-2013-00447

PATIENT
  Age: 38 Year
  Sex: Male

DRUGS (3)
  1. LIORESAL [Suspect]
     Indication: MUSCLE SPASTICITY
  2. BACLOFEN [Concomitant]
  3. VALIUM [Concomitant]

REACTIONS (6)
  - Device failure [None]
  - Drug withdrawal syndrome [None]
  - Pruritus [None]
  - Musculoskeletal stiffness [None]
  - Feeling abnormal [None]
  - Local swelling [None]
